FAERS Safety Report 15775571 (Version 1)
Quarter: 2018Q4

REPORT INFORMATION
  Report Type: Report from Study
  Country: CN (occurrence: CN)
  Receive Date: 20181231
  Receipt Date: 20181231
  Transmission Date: 20190205
  Serious: Yes (Other)
  Sender: FDA-Public Use
  Company Number: CN-ROCHE-2234027

PATIENT

DRUGS (7)
  1. DIPHENHYDRAMINE. [Concomitant]
     Active Substance: DIPHENHYDRAMINE
     Route: 030
  2. BEVACIZUMAB. [Suspect]
     Active Substance: BEVACIZUMAB
     Indication: LUNG ADENOCARCINOMA
     Dosage: ON DAY 1
     Route: 042
  3. CISPLATIN. [Suspect]
     Active Substance: CISPLATIN
     Indication: LUNG ADENOCARCINOMA
     Dosage: ON DAY 1?ON DAY 2-4
     Route: 042
  4. PEMETREXED. [Suspect]
     Active Substance: PEMETREXED
     Indication: LUNG ADENOCARCINOMA
     Dosage: DAY 1
     Route: 042
  5. PANTOPRAZOLE [Concomitant]
     Active Substance: PANTOPRAZOLE
     Route: 065
  6. NEDAPLATIN [Suspect]
     Active Substance: NEDAPLATIN
     Indication: LUNG ADENOCARCINOMA
     Dosage: ON DAY 2-4
     Route: 042
  7. TROPISETRON [Concomitant]
     Active Substance: TROPISETRON
     Route: 042

REACTIONS (6)
  - Nausea [Unknown]
  - Bone marrow failure [Recovering/Resolving]
  - Respiratory tract haemorrhage [Recovered/Resolved]
  - Vomiting [Unknown]
  - Platelet count decreased [Unknown]
  - Neutrophil count decreased [Unknown]
